FAERS Safety Report 20673721 (Version 1)
Quarter: 2022Q2

REPORT INFORMATION
  Report Type: Spontaneous
  Country: US (occurrence: None)
  Receive Date: 20220404
  Receipt Date: 20220404
  Transmission Date: 20220721
  Serious: No
  Sender: FDA-Public Use
  Company Number: None

PATIENT
  Age: 20 Year
  Sex: Female
  Weight: 67.5 kg

DRUGS (2)
  1. MICONAZOLE NITRATE [Suspect]
     Active Substance: MICONAZOLE NITRATE
     Indication: Fungal infection
     Dates: start: 20220403, end: 20220404
  2. PROZAC [Concomitant]
     Active Substance: FLUOXETINE HYDROCHLORIDE

REACTIONS (3)
  - Vulvovaginal burning sensation [None]
  - Vulvovaginal pruritus [None]
  - Insomnia [None]

NARRATIVE: CASE EVENT DATE: 20220403
